FAERS Safety Report 25225733 (Version 2)
Quarter: 2025Q2

REPORT INFORMATION
  Report Type: Spontaneous
  Country: US (occurrence: US)
  Receive Date: 20250422
  Receipt Date: 20250505
  Transmission Date: 20250716
  Serious: Yes (Death, Hospitalization, Other)
  Sender: ROCHE
  Company Number: US-ROCHE-10000264647

PATIENT
  Sex: Female

DRUGS (1)
  1. OCREVUS [Suspect]
     Active Substance: OCRELIZUMAB
     Indication: Product used for unknown indication
     Route: 065

REACTIONS (4)
  - Neoplasm malignant [Fatal]
  - Cerebrovascular accident [Unknown]
  - Cardiac arrest [Fatal]
  - Metastatic neoplasm [Unknown]
